FAERS Safety Report 8769490 (Version 2)
Quarter: 2013Q4

REPORT INFORMATION
  Report Type: Spontaneous
  Country: NO (occurrence: NO)
  Receive Date: 20120904
  Receipt Date: 20131101
  Transmission Date: 20140711
  Serious: Yes (Life-Threatening, Other)
  Sender: FDA-Public Use
  Company Number: NO-009507513-1208NOR011202

PATIENT
  Age: 46 Year
  Sex: Female
  Weight: 100 kg

DRUGS (4)
  1. ESMERON [Suspect]
     Indication: ENDOTRACHEAL INTUBATION
     Dosage: 10 MG, UNK
     Route: 042
     Dates: start: 20120620, end: 20120620
  2. NORCURON [Suspect]
     Indication: ENDOTRACHEAL INTUBATION
     Dosage: 4 MG, UNK
     Route: 042
     Dates: start: 20120620, end: 20120620
  3. FENTANYL [Concomitant]
     Route: 042
  4. PENTOTHAL SODIUM [Concomitant]
     Route: 042

REACTIONS (1)
  - Airway complication of anaesthesia [Recovered/Resolved]
